FAERS Safety Report 7147593-1 (Version None)
Quarter: 2010Q4

REPORT INFORMATION
  Report Type: 
  Country: None (occurrence: None)
  Receive Date: 20101209
  Receipt Date: 20101117
  Transmission Date: 20110411
  Serious: No
  Sender: FDA-Public Use
  Company Number: US-BIOGENIDEC-2010BI040967

PATIENT
  Age: 35 Year
  Sex: Female

DRUGS (3)
  1. TYSABRI [Suspect]
     Indication: MULTIPLE SCLEROSIS
     Route: 042
     Dates: start: 20081219, end: 20081219
  2. TYSABRI [Suspect]
     Route: 042
     Dates: start: 20100921
  3. TYSABRI [Suspect]
     Route: 042

REACTIONS (6)
  - DYSARTHRIA [None]
  - FATIGUE [None]
  - MENTAL IMPAIRMENT [None]
  - NAUSEA [None]
  - TREMOR [None]
  - VOMITING [None]
